FAERS Safety Report 19509396 (Version 2)
Quarter: 2021Q3

REPORT INFORMATION
  Report Type: Report from Study
  Country: US (occurrence: US)
  Receive Date: 20210708
  Receipt Date: 20210721
  Transmission Date: 20211014
  Serious: Yes (Other)
  Sender: FDA-Public Use
  Company Number: US-PFIZER INC-2021516301

PATIENT
  Age: 54 Year
  Sex: Female

DRUGS (5)
  1. LETROZOLE. [Concomitant]
     Active Substance: LETROZOLE
     Dosage: UNK, 1X/DAY (DAILY ONLY WHEN TAKING IBRANCE)
  2. IBRANCE [Suspect]
     Active Substance: PALBOCICLIB
     Indication: BREAST CANCER FEMALE
     Dosage: 125 MG, CYCLIC (DAILY FOR 21 DAYS, 7 DAYS OFF)
     Route: 048
     Dates: start: 202102, end: 2021
  3. IBRANCE [Suspect]
     Active Substance: PALBOCICLIB
     Dosage: 100 MG, CYCLIC (DAILY FOR 21 DAYS, 7 DAYS OFF)
     Route: 048
     Dates: start: 20210505
  4. MORPHINE [Concomitant]
     Active Substance: MORPHINE
     Dosage: UNK, HOUR BEFORE BEDTIME
  5. OXYCODONE [Concomitant]
     Active Substance: OXYCODONE
     Dosage: UNK, ABOUT HOUR BEFORE BEDTIME

REACTIONS (7)
  - Constipation [Unknown]
  - Haemoglobin decreased [Unknown]
  - Dizziness postural [Unknown]
  - Dyspepsia [Recovered/Resolved]
  - Therapeutic response unexpected [Unknown]
  - Alopecia [Unknown]
  - Back pain [Recovering/Resolving]

NARRATIVE: CASE EVENT DATE: 202102
